FAERS Safety Report 4559101-X (Version None)
Quarter: 2005Q1

REPORT INFORMATION
  Report Type: 
  Country: None (occurrence: None)
  Receive Date: 20050120
  Receipt Date: 20050120
  Transmission Date: 20050727
  Serious: Yes (Hospitalization)
  Sender: FDA-Public Use
  Company Number: None

PATIENT
  Age: 64 Year
  Sex: Female
  Weight: 58 kg

DRUGS (6)
  1. NAPROXEN [Suspect]
     Indication: PAIN
     Dosage: ? PO PRN RECENTLY INCREASE USE
     Route: 048
  2. ASPIRIN [Suspect]
     Indication: CORONARY ARTERY DISEASE
     Dosage: 325 MG DAILY PO CHRONIC
     Route: 048
  3. LIPITOR [Concomitant]
  4. LOPID [Concomitant]
  5. ASPIRIN [Concomitant]
  6. NAPROXEN [Concomitant]

REACTIONS (5)
  - ANAEMIA [None]
  - DYSPEPSIA [None]
  - GASTRIC ULCER HAEMORRHAGE [None]
  - THROMBOSIS [None]
  - UPPER GASTROINTESTINAL HAEMORRHAGE [None]
